FAERS Safety Report 8487604-4 (Version None)
Quarter: 2012Q2

REPORT INFORMATION
  Report Type: 
  Country: None (occurrence: None)
  Receive Date: 20120402
  Receipt Date: 20090410
  Transmission Date: 20120825
  Serious: Yes (Hospitalization)
  Sender: FDA-Public Use
  Company Number: PHEH2009US03213

PATIENT
  Age: 61 Year
  Sex: Male

DRUGS (2)
  1. DIOVAN [Suspect]
     Dosage: UNK;UNK, NO TREATMENT, UNK,UNK, ORAL
     Route: 048
  2. EXFORGE [Suspect]

REACTIONS (1)
  - HEADACHE [None]
